FAERS Safety Report 17777980 (Version 1)
Quarter: 2020Q2

REPORT INFORMATION
  Report Type: Spontaneous
  Country: US (occurrence: US)
  Receive Date: 20200513
  Receipt Date: 20200513
  Transmission Date: 20200714
  Serious: Yes (Hospitalization, Other)
  Sender: FDA-Public Use
  Company Number: US-AKRON, INC.-2083739

PATIENT
  Age: 69 Year
  Sex: Male

DRUGS (2)
  1. RASAGILINE. [Suspect]
     Active Substance: RASAGILINE
  2. CIPROFLOXACIN OPHTHALMIC SOLUTION [Suspect]
     Active Substance: CIPROFLOXACIN HYDROCHLORIDE
     Indication: URINARY TRACT INFECTION

REACTIONS (3)
  - Drug interaction [Unknown]
  - Parkinsonism [Recovering/Resolving]
  - Dopaminergic drug therapy [Recovering/Resolving]
